FAERS Safety Report 6884078-1 (Version None)
Quarter: 2010Q3

REPORT INFORMATION
  Report Type: 
  Country: None (occurrence: None)
  Receive Date: 20100727
  Receipt Date: 20100713
  Transmission Date: 20110219
  Serious: Yes (Hospitalization)
  Sender: FDA-Public Use
  Company Number: 7001858

PATIENT
  Age: 64 Year
  Sex: Female
  Weight: 68 kg

DRUGS (5)
  1. REBIF [Suspect]
     Indication: MULTIPLE SCLEROSIS
     Dosage: 44 MCG, 3 IN 1 WK; SUBCUTANEOUS
     Route: 058
     Dates: start: 20090128
  2. BACLOFEN [Concomitant]
  3. SERTRALINE HYDROCHLORIDE [Concomitant]
  4. AMITRIPTYLINE HYDROCHLORIDE [Concomitant]
  5. PRILOSEC (OMEPRAZOLE) [Concomitant]

REACTIONS (5)
  - ASTHENIA [None]
  - BLOOD PRESSURE SYSTOLIC INCREASED [None]
  - FEELING HOT [None]
  - INJECTION SITE HAEMATOMA [None]
  - LOSS OF CONSCIOUSNESS [None]
